FAERS Safety Report 16153500 (Version 1)
Quarter: 2019Q2

REPORT INFORMATION
  Report Type: Spontaneous
  Country: US (occurrence: US)
  Receive Date: 20190403
  Receipt Date: 20190403
  Transmission Date: 20190711
  Serious: No
  Sender: FDA-Public Use
  Company Number: US-JNJFOC-20190310391

PATIENT
  Age: 92 Year
  Sex: Female
  Weight: 52.16 kg

DRUGS (1)
  1. TYLENOL EXTRA STRENGTH [Suspect]
     Active Substance: ACETAMINOPHEN
     Indication: HERPES ZOSTER
     Route: 048

REACTIONS (3)
  - Product package associated injury [Unknown]
  - Product use in unapproved indication [Unknown]
  - Product packaging issue [Unknown]
